FAERS Safety Report 5725270-9 (Version None)
Quarter: 2008Q2

REPORT INFORMATION
  Report Type: 
  Country: None (occurrence: None)
  Receive Date: 20080501
  Receipt Date: 20080422
  Transmission Date: 20081010
  Serious: Yes (Hospitalization)
  Sender: FDA-Public Use
  Company Number: FR-ASTRAZENECA-2008CG00614

PATIENT
  Age: 22875 Day
  Sex: Male

DRUGS (9)
  1. NEXIUM [Suspect]
     Route: 048
     Dates: start: 20080104, end: 20080115
  2. LOXEN [Suspect]
     Indication: HYPERTENSION
     Route: 048
     Dates: start: 20080106, end: 20080118
  3. ROCEPHIN [Suspect]
     Indication: STAPHYLOCOCCAL SEPSIS
     Route: 042
     Dates: start: 20071228, end: 20080107
  4. LASILIX [Concomitant]
     Dates: start: 20071201, end: 20071230
  5. TARDYFERON [Concomitant]
     Route: 048
     Dates: start: 20080105
  6. MAGNE B6 [Concomitant]
     Route: 048
     Dates: start: 20080107
  7. VITAMIN K TAB [Concomitant]
     Dates: start: 20080107
  8. PHOSPHONEUROS [Concomitant]
     Dates: start: 20080107
  9. VITAMIN B COMPLEX CAP [Concomitant]
     Dates: start: 20080108

REACTIONS (2)
  - LEUKOPENIA [None]
  - LYMPHOPENIA [None]
